FAERS Safety Report 7444965-2 (Version None)
Quarter: 2011Q2

REPORT INFORMATION
  Report Type: 
  Country: None (occurrence: None)
  Receive Date: 20110429
  Receipt Date: 20110426
  Transmission Date: 20111010
  Serious: No
  Sender: FDA-Public Use
  Company Number: US-TEVA-278666USA

PATIENT
  Sex: Female
  Weight: 104.42 kg

DRUGS (3)
  1. NORVASC [Concomitant]
     Indication: BLOOD PRESSURE
     Dosage: 10 MILLIGRAM;
     Route: 048
  2. WATER PILL [Concomitant]
     Indication: BLOOD PRESSURE
     Dosage: 25 MILLIGRAM;
     Route: 048
  3. PLAN B ONE-STEP [Suspect]
     Indication: POST COITAL CONTRACEPTION
     Dosage: 1.5 MILLIGRAM;
     Route: 048
     Dates: start: 20110412, end: 20110412

REACTIONS (1)
  - MENSTRUATION IRREGULAR [None]
